FAERS Safety Report 7140936-4 (Version None)
Quarter: 2010Q4

REPORT INFORMATION
  Report Type: 
  Country: None (occurrence: None)
  Receive Date: 20101207
  Receipt Date: 20100823
  Transmission Date: 20110411
  Serious: Yes (Other)
  Sender: FDA-Public Use
  Company Number: KR-ELI_LILLY_AND_COMPANY-KR201012000844

PATIENT

DRUGS (2)
  1. GEMZAR [Suspect]
     Indication: ADENOCARCINOMA PANCREAS
     Dosage: 1250 MG/M2, ON DAY 1 AND 8, EVERY 3 WEEKS
  2. CAPECITABINE [Concomitant]
     Indication: ADENOCARCINOMA PANCREAS
     Dosage: 950 MG/M2, ON DAY 1 AND 14, EVERY 3 WEEKS

REACTIONS (1)
  - ADVERSE EVENT [None]
